FAERS Safety Report 14467699 (Version 2)
Quarter: 2018Q1

REPORT INFORMATION
  Report Type: Report from Study
  Country: CN (occurrence: CN)
  Receive Date: 20180131
  Receipt Date: 20180214
  Transmission Date: 20180509
  Serious: Yes (Hospitalization, Other)
  Sender: FDA-Public Use
  Company Number: CN-BAYER-2017-204779

PATIENT
  Age: 80 Year
  Sex: Male

DRUGS (1)
  1. STIVARGA [Suspect]
     Active Substance: REGORAFENIB
     Indication: GASTROINTESTINAL CARCINOMA
     Dosage: 80 MG, QD
     Route: 048
     Dates: start: 20171015, end: 20171224

REACTIONS (18)
  - Cough [Recovering/Resolving]
  - Tumour marker increased [Not Recovered/Not Resolved]
  - Abdominal distension [Not Recovered/Not Resolved]
  - Hepatic function abnormal [None]
  - Hepatic function abnormal [Not Recovered/Not Resolved]
  - Blood bilirubin increased [None]
  - Respiratory failure [Not Recovered/Not Resolved]
  - Blood pressure increased [None]
  - Hepatic lesion [None]
  - Hypertension [Recovering/Resolving]
  - Blood pressure increased [None]
  - Gastrointestinal carcinoma [Not Recovered/Not Resolved]
  - Lung infection [None]
  - Cough [Not Recovered/Not Resolved]
  - Sputum discoloured [Recovering/Resolving]
  - Dysphonia [Recovering/Resolving]
  - Hospitalisation [None]
  - Abdominal distension [Recovering/Resolving]

NARRATIVE: CASE EVENT DATE: 20171020
